FAERS Safety Report 8398862-9 (Version None)
Quarter: 2012Q2

REPORT INFORMATION
  Report Type: 
  Country: None (occurrence: None)
  Receive Date: 20120524
  Receipt Date: 20120508
  Transmission Date: 20120825
  Serious: Yes (Other)
  Sender: FDA-Public Use
  Company Number: 2012-2202

PATIENT
  Sex: Female

DRUGS (3)
  1. DYSPORT [Suspect]
     Indication: OFF LABEL USE
     Dosage: 110 UNITS (110 UNITS, SINGLE CYCLE), INTRAMUSCULAR
     Route: 030
     Dates: start: 20120427, end: 20120427
  2. DYSPORT [Suspect]
     Indication: SKIN WRINKLING
     Dosage: 110 UNITS (110 UNITS, SINGLE CYCLE), INTRAMUSCULAR
     Route: 030
     Dates: start: 20120427, end: 20120427
  3. BOTULINUM TOXIN TYPE A [Suspect]

REACTIONS (1)
  - CONVULSION [None]
